FAERS Safety Report 24796168 (Version 1)
Quarter: 2025Q1

REPORT INFORMATION
  Report Type: Report from Study
  Country: US (occurrence: US)
  Receive Date: 20250101
  Receipt Date: 20250101
  Transmission Date: 20250408
  Serious: Yes (Death, Other)
  Sender: ACADIA PHARMACEUTICALS
  Company Number: US-ACADIA PHARMACEUTICALS INC.-ACA-2024-PIM-008924

PATIENT
  Sex: Male

DRUGS (9)
  1. NUPLAZID [Suspect]
     Active Substance: PIMAVANSERIN TARTRATE
     Indication: Parkinson^s disease
     Dosage: 34 MILLIGRAM, QD
     Route: 048
     Dates: start: 20231016, end: 20241204
  2. FINASTERIDE [Concomitant]
     Active Substance: FINASTERIDE
  3. AMANTADINE [Concomitant]
     Active Substance: AMANTADINE
  4. RASAGILINE [Concomitant]
     Active Substance: RASAGILINE
  5. GENTAMICIN [Concomitant]
     Active Substance: GENTAMICIN
  6. METHIMAZOLE [Concomitant]
     Active Substance: METHIMAZOLE
  7. CARBIDOPA\LEVODOPA [Concomitant]
     Active Substance: CARBIDOPA\LEVODOPA
  8. VITAMINS [Concomitant]
     Active Substance: VITAMINS
  9. ATORVASTATIN [Concomitant]
     Active Substance: ATORVASTATIN

REACTIONS (1)
  - Parkinson^s disease [Fatal]
